FAERS Safety Report 17346480 (Version 1)
Quarter: 2020Q1

REPORT INFORMATION
  Report Type: Spontaneous
  Country: US (occurrence: US)
  Receive Date: 20200129
  Receipt Date: 20200129
  Transmission Date: 20200409
  Serious: No
  Sender: FDA-Public Use
  Company Number: US-EXELIXIS-CABO-19022882

PATIENT
  Age: 65 Year
  Sex: Male

DRUGS (13)
  1. SERTRALIN [Concomitant]
     Active Substance: SERTRALINE HYDROCHLORIDE
  2. CABOMETYX [Suspect]
     Active Substance: CABOZANTINIB S-MALATE
     Dosage: 20 MG, QD
     Dates: start: 20190603
  3. GUAIFENESIN/CODEINE [Concomitant]
     Active Substance: CODEINE PHOSPHATE\GUAIFENESIN
  4. CEFPODOXIME [Concomitant]
     Active Substance: CEFPODOXIME
  5. OXYCODONE [Concomitant]
     Active Substance: OXYCODONE
  6. VALTREX [Concomitant]
     Active Substance: VALACYCLOVIR HYDROCHLORIDE
  7. MARINOL [Concomitant]
     Active Substance: DRONABINOL
  8. NYSTATIN. [Concomitant]
     Active Substance: NYSTATIN
  9. CABOMETYX [Suspect]
     Active Substance: CABOZANTINIB S-MALATE
     Indication: RENAL CELL CARCINOMA
     Dosage: 40 MG, QD
     Dates: start: 20190409
  10. ZOFRAN [Concomitant]
     Active Substance: ONDANSETRON HYDROCHLORIDE
  11. COMPAZINE [Concomitant]
     Active Substance: PROCHLORPERAZINE MALEATE
  12. LORAZEPAM. [Concomitant]
     Active Substance: LORAZEPAM
  13. FLUCONAZOLE. [Concomitant]
     Active Substance: FLUCONAZOLE

REACTIONS (7)
  - Burning sensation [Unknown]
  - Stomatitis [Unknown]
  - Fatigue [Unknown]
  - Oropharyngeal pain [Unknown]
  - Ageusia [Unknown]
  - Nasal congestion [Unknown]
  - Pain [Unknown]
